FAERS Safety Report 7558844-3 (Version None)
Quarter: 2011Q2

REPORT INFORMATION
  Report Type: 
  Country: None (occurrence: None)
  Receive Date: 20110613
  Receipt Date: 20110531
  Transmission Date: 20111010
  Serious: Yes (Hospitalization)
  Sender: FDA-Public Use
  Company Number: LEO-2011-00362

PATIENT
  Age: 58 Year
  Sex: Female
  Weight: 46 kg

DRUGS (10)
  1. CISPLATIN [Concomitant]
  2. METHOTREXATE [Concomitant]
  3. CYCLOPHOSPHAMIDE [Concomitant]
  4. DOXORUBICIN HCL [Concomitant]
  5. PACLITAXEL [Concomitant]
  6. INNOHEP [Suspect]
     Indication: EMBOLISM VENOUS
     Dosage: 9000 IU (9000 IU, 1 IN 1 D), SUBCUTANEOUS; 9000 IU (9000 IU, 1 IN 1 D), SUBCUTANEOUS
     Route: 058
     Dates: start: 20110423
  7. INNOHEP [Suspect]
     Indication: EMBOLISM VENOUS
     Dosage: 9000 IU (9000 IU, 1 IN 1 D), SUBCUTANEOUS; 9000 IU (9000 IU, 1 IN 1 D), SUBCUTANEOUS
     Route: 058
     Dates: start: 20110407, end: 20110418
  8. CARBOPLATIN [Concomitant]
  9. FLUOROURACIL [Concomitant]
  10. CALCIUM LEVOFOLINATE (CALCIUM LEVOFOLINATE) [Concomitant]

REACTIONS (2)
  - RECTAL HAEMORRHAGE [None]
  - COLITIS [None]
